FAERS Safety Report 8271888-1 (Version None)
Quarter: 2012Q2

REPORT INFORMATION
  Report Type: 
  Country: None (occurrence: None)
  Receive Date: 20120410
  Receipt Date: 20120323
  Transmission Date: 20120825
  Serious: No
  Sender: FDA-Public Use
  Company Number: DE-ALEXION-A201101040

PATIENT
  Sex: Male

DRUGS (6)
  1. SOLIRIS [Suspect]
     Indication: HAEMOLYTIC URAEMIC SYNDROME
     Dosage: 900 MG, SINGLE
     Route: 042
     Dates: start: 20110702
  2. TRAMADOL HYDROCHLORIDE [Concomitant]
     Indication: PAIN
     Dosage: 100 MG, UNK
     Route: 048
     Dates: start: 20110628, end: 20110629
  3. MUTAFLOR [Concomitant]
     Indication: COLITIS
     Dosage: 2X1 UNK
     Route: 048
     Dates: start: 20110629
  4. DIPYRONE TAB [Concomitant]
     Indication: PAIN
     Dosage: 1 G, UNK
     Route: 048
     Dates: start: 20110628, end: 20110630
  5. AZITHROMYCIN [Suspect]
     Indication: ANTIBIOTIC PROPHYLAXIS
     Dosage: UNK
     Dates: start: 20110705
  6. PHENYTOIN [Suspect]
     Indication: PROPHYLAXIS

REACTIONS (1)
  - HEPATIC ENZYME INCREASED [None]
